FAERS Safety Report 4531339-7 (Version None)
Quarter: 2004Q4

REPORT INFORMATION
  Report Type: 
  Country: None (occurrence: None)
  Receive Date: 20041206
  Receipt Date: 20040915
  Transmission Date: 20050328
  Serious: No
  Sender: FDA-Public Use
  Company Number: USA040978276

PATIENT
  Age: 58 Year
  Sex: Female
  Weight: 83 kg

DRUGS (8)
  1. CYMBALTA [Suspect]
     Indication: DEPRESSION
     Dosage: 60 MG/1 DAY
     Dates: start: 20040914
  2. NEXIUM [Concomitant]
  3. ZELNORM [Concomitant]
  4. SERAX [Concomitant]
  5. LEVOXYL [Concomitant]
  6. HYDROCODONE [Concomitant]
  7. SONATA [Concomitant]
  8. LESCOL [Concomitant]

REACTIONS (2)
  - NAUSEA [None]
  - SOMNOLENCE [None]
